FAERS Safety Report 8890109 (Version 1)
Quarter: 2012Q4

REPORT INFORMATION
  Report Type: 
  Country: CA (occurrence: CA)
  Receive Date: 20121106
  Receipt Date: 20121106
  Transmission Date: 20130627
  Serious: Yes (Other)
  Sender: FDA-Public Use
  Company Number: PHMT2007CA00967

PATIENT
  Sex: Female

DRUGS (9)
  1. SANDOSTATIN LAR [Suspect]
     Dates: start: 1996
  2. SANDOSTATIN LAR [Suspect]
     Dosage: 20 mg QMO
     Dates: start: 20060505
  3. ACTOS [Concomitant]
  4. DIAMICRON [Concomitant]
  5. METFORMIN [Concomitant]
  6. PANTOLOC ^SOLVAY^ [Concomitant]
  7. NORVASC [Concomitant]
  8. AVALIDE [Concomitant]
  9. ZESTRIL [Concomitant]

REACTIONS (15)
  - Rib fracture [Unknown]
  - Pain [Unknown]
  - Fall [Unknown]
  - Weight increased [Unknown]
  - Cholelithiasis [Recovered/Resolved]
  - Abdominal distension [Unknown]
  - Flatulence [Unknown]
  - Diarrhoea [Unknown]
  - Nasopharyngitis [Unknown]
  - Nasal congestion [Unknown]
  - Cough [Unknown]
  - Decreased appetite [Unknown]
  - Blood growth hormone decreased [Unknown]
  - Blood glucose increased [Unknown]
  - Asthenia [Unknown]
